FAERS Safety Report 15087475 (Version 4)
Quarter: 2021Q1

REPORT INFORMATION
  Report Type: Report from Study
  Country: US (occurrence: US)
  Receive Date: 20180628
  Receipt Date: 20210219
  Transmission Date: 20210419
  Serious: No
  Sender: FDA-Public Use
  Company Number: US-JAZZ-2018-US-007013

PATIENT
  Sex: Female

DRUGS (38)
  1. SULFACETAMIDE W/SULFUR [Concomitant]
  2. CYMBALTA [Concomitant]
     Active Substance: DULOXETINE HYDROCHLORIDE
  3. NUVIGIL [Concomitant]
     Active Substance: ARMODAFINIL
  4. PYRIDIUM [Concomitant]
     Active Substance: PHENAZOPYRIDINE
  5. LYRICA [Concomitant]
     Active Substance: PREGABALIN
  6. CLINDAMYCIN HYDROCHLORIDE. [Concomitant]
     Active Substance: CLINDAMYCIN HYDROCHLORIDE
  7. MOVANTIK [Concomitant]
     Active Substance: NALOXEGOL OXALATE
  8. METHADONE HCL [Concomitant]
     Active Substance: METHADONE HYDROCHLORIDE
  9. CALCIUM + VIT D [Concomitant]
     Active Substance: CALCIUM\VITAMIN D
  10. SENNA LAXATIVE [Concomitant]
     Active Substance: SENNOSIDES
  11. TROSPIUM CHLORIDE. [Concomitant]
     Active Substance: TROSPIUM CHLORIDE
  12. BISACODYL. [Concomitant]
     Active Substance: BISACODYL
  13. DIFFERIN [Concomitant]
     Active Substance: ADAPALENE
  14. RELISTOR [Concomitant]
     Active Substance: METHYLNALTREXONE BROMIDE
  15. FLUOCINONIDE. [Concomitant]
     Active Substance: FLUOCINONIDE
  16. MAXALT?MLT [Concomitant]
     Active Substance: RIZATRIPTAN BENZOATE
  17. GABAPENTIN. [Concomitant]
     Active Substance: GABAPENTIN
  18. RIZATRIPTAN. [Concomitant]
     Active Substance: RIZATRIPTAN
  19. VITAMIN D3 [Concomitant]
     Active Substance: CHOLECALCIFEROL
  20. FENTORA [Concomitant]
     Active Substance: FENTANYL CITRATE
  21. YASMIN [Concomitant]
     Active Substance: DROSPIRENONE\ETHINYL ESTRADIOL
  22. QUETIAPINE FUMARATE. [Concomitant]
     Active Substance: QUETIAPINE FUMARATE
  23. PROPRANOLOL [Concomitant]
     Active Substance: PROPRANOLOL HYDROCHLORIDE
  24. DOCUSATE SODIUM. [Concomitant]
     Active Substance: DOCUSATE SODIUM
  25. XYREM [Suspect]
     Active Substance: SODIUM OXYBATE
     Indication: NARCOLEPSY
     Dosage: 4 G, BID
     Route: 048
     Dates: start: 200911, end: 200912
  26. XYREM [Suspect]
     Active Substance: SODIUM OXYBATE
     Indication: CATAPLEXY
     Dosage: 2.25 G, BID
     Route: 048
     Dates: start: 201506, end: 201506
  27. XYREM [Suspect]
     Active Substance: SODIUM OXYBATE
     Dosage: 4.5 G, BID
     Route: 048
     Dates: start: 201801
  28. DENTA 5000 PLUS [Concomitant]
     Active Substance: SODIUM FLUORIDE
  29. TIZANIDINE HCL [Concomitant]
     Active Substance: TIZANIDINE HYDROCHLORIDE
  30. METOPROLOL. [Concomitant]
     Active Substance: METOPROLOL
  31. MIDODRINE [Concomitant]
     Active Substance: MIDODRINE
  32. XYREM [Suspect]
     Active Substance: SODIUM OXYBATE
     Dosage: DOSE ADJUSTMENT
     Route: 048
     Dates: start: 201506, end: 201801
  33. DIFLUPREDNATE [Concomitant]
     Active Substance: DIFLUPREDNATE
  34. CLONIDINE HCL [Concomitant]
     Active Substance: CLONIDINE HYDROCHLORIDE
  35. CHLORAL HYDRATE [Concomitant]
     Active Substance: CHLORAL HYDRATE
  36. GLICLAZIDE [Concomitant]
     Active Substance: GLICLAZIDE
  37. CLONAZEPAM. [Concomitant]
     Active Substance: CLONAZEPAM
  38. ALENDRONATE SODIUM. [Concomitant]
     Active Substance: ALENDRONATE SODIUM

REACTIONS (2)
  - Stress fracture [Unknown]
  - Pre-existing condition improved [Unknown]
